FAERS Safety Report 8888374 (Version 2)
Quarter: 2013Q2

REPORT INFORMATION
  Report Type: Spontaneous
  Country: IT (occurrence: IT)
  Receive Date: 20121106
  Receipt Date: 20130506
  Transmission Date: 20140414
  Serious: Yes (Disabling)
  Sender: FDA-Public Use
  Company Number: PHHY2012IT100458

PATIENT
  Age: 63 Year
  Sex: Male

DRUGS (2)
  1. AFINITOR [Suspect]
     Indication: RENAL CELL CARCINOMA
     Dosage: 10 MG, DAILY
     Route: 048
     Dates: start: 20110412
  2. ZOMETA [Concomitant]
     Dosage: 4 MG, UNK
     Dates: start: 20120707, end: 20120718

REACTIONS (1)
  - Osteonecrosis of jaw [Unknown]
